FAERS Safety Report 6704658-3 (Version None)
Quarter: 2010Q2

REPORT INFORMATION
  Report Type: 
  Country: None (occurrence: None)
  Receive Date: 20100430
  Receipt Date: 20100420
  Transmission Date: 20101027
  Serious: Yes (Hospitalization)
  Sender: FDA-Public Use
  Company Number: US-JNJFOC-20100109289

PATIENT
  Sex: Female

DRUGS (7)
  1. NUCYNTA [Suspect]
     Indication: ARTHRALGIA
     Dosage: EVERY 4-6 HOURS
     Route: 048
  2. NUCYNTA [Suspect]
     Indication: BACK PAIN
     Dosage: EVERY 4-6 HOURS
     Route: 048
  3. EFFEXOR [Concomitant]
     Indication: DEPRESSION
     Route: 048
  4. NEURONTIN [Concomitant]
     Route: 048
  5. HYDROCODONE BITARTRATE [Concomitant]
     Indication: PAIN
     Route: 048
  6. AMBIEN [Concomitant]
     Route: 048
  7. VICODIN [Concomitant]
     Indication: PAIN
     Route: 048

REACTIONS (3)
  - ARRHYTHMIA [None]
  - CARDIAC ARREST [None]
  - LOSS OF CONSCIOUSNESS [None]
